FAERS Safety Report 25726926 (Version 2)
Quarter: 2025Q3

REPORT INFORMATION
  Report Type: Spontaneous
  Country: US (occurrence: US)
  Receive Date: 20250826
  Receipt Date: 20250828
  Transmission Date: 20251021
  Serious: No
  Sender: PFIZER
  Company Number: US-PFIZER INC-202500169490

PATIENT
  Age: 64 Year
  Sex: Female

DRUGS (4)
  1. IBRANCE [Suspect]
     Active Substance: PALBOCICLIB
     Dates: start: 20250808, end: 20250821
  2. ANASTROZOLE [Concomitant]
     Active Substance: ANASTROZOLE
  3. CARVEDILOL [Concomitant]
     Active Substance: CARVEDILOL
  4. COD LIVER OIL [Concomitant]
     Active Substance: COD LIVER OIL

REACTIONS (1)
  - White blood cell count decreased [Not Recovered/Not Resolved]

NARRATIVE: CASE EVENT DATE: 20250801
